FAERS Safety Report 13659688 (Version 1)
Quarter: 2017Q2

REPORT INFORMATION
  Report Type: Spontaneous
  Country: US (occurrence: US)
  Receive Date: 20170616
  Receipt Date: 20170616
  Transmission Date: 20170830
  Serious: Yes (Other)
  Sender: FDA-Public Use
  Company Number: None

PATIENT
  Age: 33 Year
  Sex: Male
  Weight: 83.99 kg

DRUGS (1)
  1. BUPROPRION [Suspect]
     Active Substance: BUPROPION
     Indication: DEPRESSION
     Dosage: 100MG AM DAILY CRUSHED, ORALLY?100MG NOON DAILY CRUSHED, ORALLY
     Route: 048
     Dates: start: 201703

REACTIONS (6)
  - Eye irritation [None]
  - Throat irritation [None]
  - Hypoaesthesia oral [None]
  - Dyspnoea [None]
  - Pharyngeal hypoaesthesia [None]
  - Wrong technique in product usage process [None]

NARRATIVE: CASE EVENT DATE: 201703
